FAERS Safety Report 7313146-5 (Version None)
Quarter: 2011Q1

REPORT INFORMATION
  Report Type: 
  Country: None (occurrence: None)
  Receive Date: 20110216
  Receipt Date: 20110216
  Transmission Date: 20110831
  Serious: Yes (Other)
  Sender: FDA-Public Use
  Company Number: None

PATIENT
  Age: 58 Year
  Sex: Female
  Weight: 49.8957 kg

DRUGS (1)
  1. SUMATRIPTAN AND NAPROXEN SODIUM [Suspect]
     Indication: MIGRAINE
     Dosage: 50 MG AS NEEDED ORAL
     Route: 048
     Dates: start: 20110115

REACTIONS (12)
  - EYE PAIN [None]
  - DIZZINESS [None]
  - PAIN IN JAW [None]
  - PRODUCT SUBSTITUTION ISSUE [None]
  - SKIN BURNING SENSATION [None]
  - PAIN [None]
  - PARAESTHESIA [None]
  - PRODUCT MEASURED POTENCY ISSUE [None]
  - SOMNOLENCE [None]
  - VERTIGO [None]
  - DRY MOUTH [None]
  - HEADACHE [None]
